FAERS Safety Report 10618567 (Version 2)
Quarter: 2014Q4

REPORT INFORMATION
  Report Type: Spontaneous
  Country: RO (occurrence: RO)
  Receive Date: 20141202
  Receipt Date: 20141204
  Transmission Date: 20150529
  Serious: No
  Sender: FDA-Public Use
  Company Number: RO-009507513-1411ROM009627

PATIENT
  Age: 33 Year
  Sex: Female

DRUGS (2)
  1. VITAMIN D [Suspect]
     Active Substance: CHOLECALCIFEROL
     Dosage: 5600 UI WEEKLY
  2. FOSAVANCE [Suspect]
     Active Substance: ALENDRONATE SODIUM\CHOLECALCIFEROL
     Dosage: 70 MG, QW
     Route: 048

REACTIONS (2)
  - Fracture [None]
  - No adverse event [Unknown]
